FAERS Safety Report 13679803 (Version 3)
Quarter: 2020Q2

REPORT INFORMATION
  Report Type: Spontaneous
  Country: IT (occurrence: IT)
  Receive Date: 20170622
  Receipt Date: 20200626
  Transmission Date: 20200713
  Serious: Yes (Life-Threatening, Hospitalization, Other)
  Sender: FDA-Public Use
  Company Number: IT-MYLANLABS-2017M1036443

PATIENT
  Age: 14 Year
  Sex: Female

DRUGS (13)
  1. MESALAZINE MYLAN [Suspect]
     Active Substance: MESALAMINE
     Indication: PROCTITIS ULCERATIVE
     Dosage: 800 MG DAILY
     Route: 048
     Dates: start: 20170511, end: 20170521
  2. MESALAZINE MYLAN [Suspect]
     Active Substance: MESALAMINE
     Dosage: 1 DOSAGE FORM, Q8H
     Route: 048
     Dates: start: 20170522, end: 20170526
  3. MESALAZINE MYLAN [Suspect]
     Active Substance: MESALAMINE
     Indication: PROCTITIS ULCERATIVE
     Dosage: 1200 MG DAILY
     Route: 048
     Dates: start: 20170522, end: 20170526
  4. CIPROFLOXACIN. [Concomitant]
     Active Substance: CIPROFLOXACIN
     Dosage: UNK
  5. ANTRA [Concomitant]
     Active Substance: OMEPRAZOLE
     Indication: PROPHYLAXIS AGAINST GASTROINTESTINAL ULCER
     Dosage: 40 MILLIGRAM
     Route: 048
     Dates: start: 2017, end: 2017
  6. REUFLOR [Concomitant]
     Indication: HENOCH-SCHONLEIN PURPURA
     Dosage: 10 GTT, QD
     Route: 048
     Dates: start: 20170504
  7. MESALAZINE [Suspect]
     Active Substance: MESALAMINE
     Indication: COLITIS
     Dosage: 800 MG, TID
  8. METHYLPREDNISOLONE. [Concomitant]
     Active Substance: METHYLPREDNISOLONE
     Dosage: UNK
     Route: 042
  9. PREDNISONE. [Concomitant]
     Active Substance: PREDNISONE
     Dosage: 25 MILLIGRAM, QD
  10. DELTACORTENE [Concomitant]
     Active Substance: PREDNISONE
     Indication: HENOCH-SCHONLEIN PURPURA
     Dosage: 40 MILLIGRAM
     Route: 048
     Dates: start: 2017, end: 2017
  11. DIBASE [Concomitant]
     Active Substance: CHOLECALCIFEROL
     Indication: VITAMIN D DEFICIENCY
     Dosage: 8 GTT DROPS
     Route: 048
     Dates: start: 2017, end: 2017
  12. METRONIDAZOLE. [Concomitant]
     Active Substance: METRONIDAZOLE
     Dosage: UNK
  13. MESALAZINE MYLAN [Suspect]
     Active Substance: MESALAMINE
     Dosage: 1 DOSAGE FORM, BID
     Route: 048
     Dates: start: 20170511, end: 20170521

REACTIONS (1)
  - Erythema multiforme [Recovered/Resolved]

NARRATIVE: CASE EVENT DATE: 20170524
